FAERS Safety Report 5443561-6 (Version None)
Quarter: 2007Q3

REPORT INFORMATION
  Report Type: 
  Country: None (occurrence: None)
  Receive Date: 20070905
  Receipt Date: 20070829
  Transmission Date: 20080115
  Serious: Yes (Death, Other)
  Sender: FDA-Public Use
  Company Number: HQWYE271330JUL07

PATIENT
  Age: 65 Year
  Sex: Male

DRUGS (2)
  1. TYGACIL [Suspect]
     Dosage: 100 MG LOADING DOSE, THEN 50MG EVERY 12 HOURS
     Route: 042
     Dates: start: 20070716, end: 20070721
  2. FLUCONAZOLE [Concomitant]
     Dosage: UNKNOWN
     Dates: start: 20070701

REACTIONS (3)
  - DEATH [None]
  - NEUTROPENIA [None]
  - RASH [None]
